FAERS Safety Report 18796587 (Version 1)
Quarter: 2021Q1

REPORT INFORMATION
  Report Type: Report from Study
  Country: BR (occurrence: BR)
  Receive Date: 20210127
  Receipt Date: 20210127
  Transmission Date: 20210419
  Serious: Yes (Other)
  Sender: FDA-Public Use
  Company Number: NVSC2021BR016459

PATIENT
  Sex: Male

DRUGS (3)
  1. DIOVAN HCT [Suspect]
     Active Substance: HYDROCHLOROTHIAZIDE\VALSARTAN
     Indication: HYPERTENSION
     Dosage: (320/12.5), STARTED MORE THAN 10 YEARS AGO
     Route: 065
  2. SYSTANE ULTRA [Suspect]
     Active Substance: POLYETHYLENE GLYCOL 400\PROPYLENE GLYCOL
     Indication: EYE LUBRICATION THERAPY
     Dosage: UNK, USES FOUR TO FIVE TIMES A DAY
     Route: 065
     Dates: start: 2015
  3. ULTRA [Concomitant]
     Active Substance: SULFACETAMIDE SODIUM
     Indication: PRODUCT USED FOR UNKNOWN INDICATION
     Dosage: UNK
     Route: 065

REACTIONS (6)
  - COVID-19 [Unknown]
  - Lens disorder [Unknown]
  - Dry eye [Unknown]
  - Drug dependence [Unknown]
  - Cataract [Unknown]
  - Visual impairment [Unknown]
